FAERS Safety Report 9110109 (Version 1)
Quarter: 2013Q1

REPORT INFORMATION
  Report Type: Spontaneous
  Country: US (occurrence: US)
  Receive Date: 20130222
  Receipt Date: 20130222
  Transmission Date: 20140127
  Serious: Yes (Hospitalization)
  Sender: FDA-Public Use
  Company Number: US-BAYER-2013-020974

PATIENT
  Age: 41 Year
  Sex: Female

DRUGS (2)
  1. YAZ [Suspect]
     Indication: OVARIAN CYST
     Dosage: UNK
     Dates: start: 20070802, end: 20071231
  2. YAZ [Suspect]
     Indication: MENSTRUATION IRREGULAR

REACTIONS (2)
  - Pulmonary embolism [None]
  - Deep vein thrombosis [None]
